FAERS Safety Report 6528931-7 (Version None)
Quarter: 2009Q4

REPORT INFORMATION
  Report Type: 
  Country: None (occurrence: None)
  Receive Date: 20091224
  Receipt Date: 20091218
  Transmission Date: 20100525
  Serious: Yes (Other)
  Sender: FDA-Public Use
  Company Number: SK-001284

PATIENT
  Age: 13 Year
  Sex: Male

DRUGS (1)
  1. MINIRIN [Suspect]
     Indication: ENURESIS
     Dosage: 120 UG, SUBLINGUAL
     Route: 060
     Dates: start: 20090714, end: 20091208

REACTIONS (4)
  - AFFECT LABILITY [None]
  - APATHY [None]
  - LETHARGY [None]
  - SOMNOLENCE [None]
